FAERS Safety Report 7704488-X (Version None)
Quarter: 2011Q3

REPORT INFORMATION
  Report Type: 
  Country: None (occurrence: None)
  Receive Date: 20110823
  Receipt Date: 20110811
  Transmission Date: 20111222
  Serious: Yes (Hospitalization)
  Sender: FDA-Public Use
  Company Number: US-NOVOPROD-333443

PATIENT
  Age: 56 Year
  Sex: Female
  Weight: 93.878 kg

DRUGS (5)
  1. DIOVAN [Concomitant]
     Indication: HYPERTENSION
  2. NOVOLOG [Suspect]
     Indication: TYPE 2 DIABETES MELLITUS
     Dosage: SLIDING SCALE
     Route: 058
     Dates: start: 20110501
  3. AMARYL [Concomitant]
     Indication: TYPE 2 DIABETES MELLITUS
     Dosage: 4 MG, BID
     Route: 048
  4. CHROMIUM PICOLINATE [Concomitant]
     Indication: TYPE 2 DIABETES MELLITUS
  5. LANTUS [Suspect]
     Indication: TYPE 2 DIABETES MELLITUS
     Dosage: 50 U, BID
     Route: 058

REACTIONS (6)
  - ORTHOSTATIC HYPOTENSION [None]
  - CHEST DISCOMFORT [None]
  - MUSCLE SPASMS [None]
  - TACHYCARDIA [None]
  - DIABETIC KETOACIDOSIS [None]
  - BLOOD GLUCOSE INCREASED [None]
